FAERS Safety Report 15393571 (Version 2)
Quarter: 2018Q3

REPORT INFORMATION
  Report Type: Spontaneous
  Country: BR (occurrence: BR)
  Receive Date: 20180917
  Receipt Date: 20180924
  Transmission Date: 20181010
  Serious: Yes (Other)
  Sender: FDA-Public Use
  Company Number: PHHY2018BR098192

PATIENT
  Sex: Female
  Weight: 62 kg

DRUGS (2)
  1. RITALINE [Suspect]
     Active Substance: METHYLPHENIDATE HYDROCHLORIDE
     Indication: ATTENTION DEFICIT/HYPERACTIVITY DISORDER
     Dosage: 5 DF, QD
     Route: 048
  2. RITALINE [Suspect]
     Active Substance: METHYLPHENIDATE HYDROCHLORIDE
     Dosage: 1 DF, QD
     Route: 048

REACTIONS (4)
  - Anxiety [Not Recovered/Not Resolved]
  - Discomfort [Not Recovered/Not Resolved]
  - Drug dependence [Not Recovered/Not Resolved]
  - Disturbance in attention [Not Recovered/Not Resolved]
